FAERS Safety Report 17515307 (Version 1)
Quarter: 2020Q1

REPORT INFORMATION
  Report Type: Report from Study
  Country: FR (occurrence: FR)
  Receive Date: 20200309
  Receipt Date: 20200309
  Transmission Date: 20200409
  Serious: Yes (Hospitalization)
  Sender: FDA-Public Use
  Company Number: FR-ROCHE-2558240

PATIENT
  Age: 38 Year
  Sex: Female
  Weight: 82 kg

DRUGS (6)
  1. PACLITAXEL. [Suspect]
     Active Substance: PACLITAXEL
     Indication: CERVIX CARCINOMA
     Dosage: ON 18/FEB/2020, SHE RECEIVED MOST RECENT DOSE OF PACLITAXEL PRIOR TO AE/SAE ONSET
     Route: 042
     Dates: start: 20191017
  2. SPASFON [PHLOROGLUCINOL;TRIMETHYLPHLOROGLUCINOL] [Concomitant]
     Active Substance: PHLOROGLUCINOL\1,3,5-TRIMETHOXYBENZENE
     Indication: PELVIC PAIN
     Route: 048
     Dates: start: 202001
  3. XANAX [Concomitant]
     Active Substance: ALPRAZOLAM
     Indication: ANXIETY
     Route: 048
     Dates: start: 20191107
  4. ATEZOLIZUMAB. [Suspect]
     Active Substance: ATEZOLIZUMAB
     Indication: CERVIX CARCINOMA
     Dosage: ON 07/JAN/2020, SHE RECEIVED MOST RECENT DOSE OF ATEZOLIZUMAB PRIOR TO AE/SAE
     Route: 042
     Dates: start: 20191017
  5. DUROGESIC [Concomitant]
     Active Substance: FENTANYL
     Indication: PELVIC PAIN
     Dosage: 25
     Route: 065
     Dates: start: 202002
  6. BEVACIZUMAB. [Suspect]
     Active Substance: BEVACIZUMAB
     Indication: CERVIX CARCINOMA
     Dosage: ON 07/JAN/2020, SHE RECEIVED MOST RECENT DOSE OF BEVACIZUMAB PRIOR TO AE/SAE ONSET
     Route: 042
     Dates: start: 20191017

REACTIONS (1)
  - Renal colic [Not Recovered/Not Resolved]

NARRATIVE: CASE EVENT DATE: 20200221
